FAERS Safety Report 7521589-X (Version None)
Quarter: 2011Q2

REPORT INFORMATION
  Report Type: 
  Country: None (occurrence: None)
  Receive Date: 20110531
  Receipt Date: 20110520
  Transmission Date: 20111010
  Serious: Yes (Hospitalization)
  Sender: FDA-Public Use
  Company Number: US-ACCORD-009249

PATIENT
  Age: 66 Year
  Sex: Male
  Weight: 80 kg

DRUGS (4)
  1. METOPROLOL TARTRATE [Concomitant]
  2. QUINAPRIL HCL [Concomitant]
  3. ASA(ASA) [Concomitant]
  4. SIMVASTATIN [Suspect]
     Indication: HYPERLIPIDAEMIA
     Dosage: 40.00-MG-1.0DAYS / ORAL
     Route: 048
     Dates: start: 20070101

REACTIONS (1)
  - CONFUSIONAL STATE [None]
